FAERS Safety Report 9283737 (Version 1)
Quarter: 2013Q2

REPORT INFORMATION
  Report Type: Spontaneous
  Country: US (occurrence: US)
  Receive Date: 20130510
  Receipt Date: 20130510
  Transmission Date: 20140414
  Serious: Yes (Hospitalization, Other)
  Sender: FDA-Public Use
  Company Number: US-BAYER-2013-058420

PATIENT
  Age: 69 Year
  Sex: Male
  Weight: 115 kg

DRUGS (19)
  1. BAYER ASPIRIN REGIMEN ADULT LOW STRENGTH [Suspect]
     Indication: PRODUCT USED FOR UNKNOWN INDICATION
     Dosage: 1 DF, QD
     Route: 048
     Dates: end: 201304
  2. XARELTO [Suspect]
     Indication: ATRIAL FIBRILLATION
     Dosage: 20 MG, QD
     Route: 048
     Dates: start: 201211, end: 201304
  3. ALPRAZOLAM [Concomitant]
     Dosage: 2 DF, QD
  4. AMIODARONE [Concomitant]
     Indication: ATRIAL FIBRILLATION
     Dosage: 200 MG, UNK
  5. AMIODARONE [Concomitant]
     Indication: VENTRICULAR TACHYCARDIA
  6. VITAMIN C [Concomitant]
     Indication: VITAMIN SUPPLEMENTATION
     Dosage: 500 MG, QD
     Route: 048
  7. ATORVASTATIN [Concomitant]
     Indication: BLOOD CHOLESTEROL ABNORMAL
     Dosage: 10 MG, QD
     Route: 048
  8. CARVEDILOL [Concomitant]
     Dosage: 3.125 MG, BID
     Route: 048
  9. DIGOXIN [Concomitant]
     Dosage: 0.125 MG, QD
     Route: 048
  10. IRON [Concomitant]
     Indication: MINERAL SUPPLEMENTATION
     Dosage: 65 MG, QD
     Route: 048
  11. MAGNESIUM OXIDE [Concomitant]
     Indication: MEDICAL DIET
     Dosage: 400 MG, QD
     Route: 048
  12. NIACIN [Concomitant]
     Dosage: 200 MG, QD
     Route: 048
  13. PANTOPRAZOLE [Concomitant]
     Dosage: 40 MG, QD
     Route: 048
  14. POTASSIUM CHLORIDE [Concomitant]
     Dosage: 10 MEQ, QD
     Route: 048
  15. QUINAPRIL [Concomitant]
     Dosage: 5 MG, BID
     Route: 048
  16. SPIRONOLACTONE [Concomitant]
     Dosage: 25 MG, QD
     Route: 048
  17. TORSEMIDE [Concomitant]
     Dosage: 2 DF, QD
     Route: 048
  18. COENZYME Q10 [Concomitant]
     Dosage: 1 DF, QD
     Route: 048
  19. MULTIVITAMINS [Concomitant]
     Dosage: 1 DF, QD
     Route: 048

REACTIONS (2)
  - Glomerular filtration rate decreased [None]
  - Gastrointestinal haemorrhage [Recovered/Resolved]
